FAERS Safety Report 5265952-9 (Version None)
Quarter: 2007Q1

REPORT INFORMATION
  Report Type: 
  Country: None (occurrence: None)
  Receive Date: 20070313
  Receipt Date: 20070313
  Transmission Date: 20070707
  Serious: Yes (Other)
  Sender: FDA-Public Use
  Company Number: None

PATIENT
  Sex: Female
  Weight: 40.8237 kg

DRUGS (2)
  1. AYR SALINE NASAL MIST N/A B.F. ASCHER + CO [Suspect]
     Indication: HYPERSENSITIVITY
     Dosage: TWO SQUIRTS UP EACH NOSTRIL AS NEEDED NASAL
     Route: 045
     Dates: start: 20070308, end: 20070308
  2. AYR SALINE NASAL MIST N/A B.F. ASCHER + CO [Suspect]
     Indication: RHINITIS ALLERGIC
     Dosage: TWO SQUIRTS UP EACH NOSTRIL AS NEEDED NASAL
     Route: 045
     Dates: start: 20070308, end: 20070308

REACTIONS (18)
  - ACCIDENTAL EXPOSURE [None]
  - AURICULAR SWELLING [None]
  - BURNING SENSATION [None]
  - DYSPNOEA [None]
  - EAR DISCOMFORT [None]
  - EAR DISORDER [None]
  - EYE IRRITATION [None]
  - EYE PRURITUS [None]
  - EYE SWELLING [None]
  - INCORRECT ROUTE OF DRUG ADMINISTRATION [None]
  - LOCALISED OEDEMA [None]
  - NASAL DISCOMFORT [None]
  - NASAL OEDEMA [None]
  - PHARYNGEAL OEDEMA [None]
  - PRURITUS [None]
  - SINUS DISORDER [None]
  - THROAT IRRITATION [None]
  - WHEEZING [None]
